FAERS Safety Report 7243278-1 (Version None)
Quarter: 2011Q1

REPORT INFORMATION
  Report Type: 
  Country: None (occurrence: None)
  Receive Date: 20110125
  Receipt Date: 20110124
  Transmission Date: 20110831
  Serious: Yes (Death)
  Sender: FDA-Public Use
  Company Number: CN-ROCHE-754842

PATIENT
  Age: 44 Year
  Sex: Male

DRUGS (4)
  1. CELLCEPT [Suspect]
     Route: 048
  2. SORAFENIB [Concomitant]
     Route: 048
  3. RAPAMUNE [Concomitant]
     Route: 048
  4. TARCEVA [Suspect]
     Indication: LUNG CANCER METASTATIC
     Route: 048

REACTIONS (1)
  - DEATH [None]
